FAERS Safety Report 8203422-6 (Version None)
Quarter: 2012Q1

REPORT INFORMATION
  Report Type: 
  Country: None (occurrence: None)
  Receive Date: 20120313
  Receipt Date: 20120302
  Transmission Date: 20120608
  Serious: Yes (Hospitalization)
  Sender: FDA-Public Use
  Company Number: FR-BRISTOL-MYERS SQUIBB COMPANY-16411936

PATIENT
  Age: 56 Year
  Sex: Female

DRUGS (8)
  1. PHENOBARBITAL TAB [Concomitant]
  2. VOGALENE [Concomitant]
  3. DEPAKENE [Concomitant]
  4. LAMOTRIGINE [Concomitant]
  5. PEMETREXED DISODIUM [Suspect]
     Indication: NON-SMALL CELL LUNG CANCER
     Dosage: MOST RECENT INF ON 29MAR2011
     Dates: start: 20110125
  6. FOLIC ACID [Concomitant]
  7. CETUXIMAB [Suspect]
     Indication: NON-SMALL CELL LUNG CANCER
     Dosage: MOST RECENT INF ON 29MAR2011
     Dates: start: 20110125
  8. CISPLATIN [Suspect]
     Indication: NON-SMALL CELL LUNG CANCER
     Dosage: MOST RECENT INF ON 29MAR2011
     Dates: start: 20110125

REACTIONS (3)
  - NEUTROPHIL COUNT DECREASED [None]
  - HAEMOGLOBIN DECREASED [None]
  - PLATELET COUNT DECREASED [None]
